FAERS Safety Report 25865112 (Version 2)
Quarter: 2025Q4

REPORT INFORMATION
  Report Type: Spontaneous
  Country: KR (occurrence: KR)
  Receive Date: 20250930
  Receipt Date: 20251006
  Transmission Date: 20260118
  Serious: Yes (Other)
  Sender: NOVARTIS
  Company Number: KR-002147023-NVSC2025KR146974

PATIENT
  Age: 27 Year
  Sex: Female

DRUGS (2)
  1. TRILEPTAL [Suspect]
     Active Substance: OXCARBAZEPINE
     Indication: Seizure
     Dosage: 300 MG, BID
     Route: 048
     Dates: start: 20230630
  2. TRILEPTAL [Suspect]
     Active Substance: OXCARBAZEPINE
     Dosage: 600 MG, BID
     Route: 048

REACTIONS (3)
  - Seizure [Recovered/Resolved]
  - Nervousness [Recovered/Resolved]
  - Depressive symptom [Recovered/Resolved]

NARRATIVE: CASE EVENT DATE: 20230901
